FAERS Safety Report 10868825 (Version 5)
Quarter: 2015Q3

REPORT INFORMATION
  Report Type: Report from Study
  Country: IT (occurrence: IT)
  Receive Date: 20150225
  Receipt Date: 20150701
  Transmission Date: 20151125
  Serious: Yes (Hospitalization, Other)
  Sender: FDA-Public Use
  Company Number: IT-GILEAD-2015-0138713

PATIENT
  Age: 68 Year
  Sex: Male

DRUGS (3)
  1. SOFOSBUVIR [Suspect]
     Active Substance: SOFOSBUVIR
     Indication: HEPATITIS C
     Dosage: 400 MG, QD
     Route: 048
     Dates: start: 20140909, end: 20150224
  2. REBETOL [Suspect]
     Active Substance: RIBAVIRIN
     Indication: HEPATITIS C
     Dosage: 1000 MG, QD
     Route: 048
     Dates: start: 20141230, end: 20150224
  3. NEORECORMON [Concomitant]
     Active Substance: ERYTHROPOIETIN
     Indication: ANAEMIA
     Dosage: UNK
     Route: 058
     Dates: start: 20141209, end: 20150211

REACTIONS (5)
  - Ascites [Unknown]
  - Small intestinal haemorrhage [Recovered/Resolved]
  - Hepatic cirrhosis [Recovering/Resolving]
  - Portal vein thrombosis [Unknown]
  - Portal hypertension [Recovering/Resolving]

NARRATIVE: CASE EVENT DATE: 20150218
